FAERS Safety Report 7803639-6 (Version None)
Quarter: 2011Q4

REPORT INFORMATION
  Report Type: 
  Country: None (occurrence: None)
  Receive Date: 20111010
  Receipt Date: 20110930
  Transmission Date: 20120403
  Serious: Yes (Hospitalization)
  Sender: FDA-Public Use
  Company Number: US-BIOGENIDEC-2011BI037565

PATIENT
  Age: 62 Year
  Sex: Female

DRUGS (1)
  1. TYSABRI [Suspect]
     Indication: MULTIPLE SCLEROSIS
     Route: 042
     Dates: start: 20070416, end: 20110819

REACTIONS (10)
  - DIZZINESS [None]
  - PERIPHERAL COLDNESS [None]
  - VITAMIN D DEFICIENCY [None]
  - URINARY TRACT INFECTION [None]
  - BLOOD PRESSURE FLUCTUATION [None]
  - ENTEROCOCCAL INFECTION [None]
  - GAIT DISTURBANCE [None]
  - SYNCOPE [None]
  - MUSCULOSKELETAL STIFFNESS [None]
  - BURNING SENSATION [None]
